FAERS Safety Report 11184122 (Version 1)
Quarter: 2015Q2

REPORT INFORMATION
  Report Type: Report from Study
  Country: US (occurrence: US)
  Receive Date: 20150612
  Receipt Date: 20150612
  Transmission Date: 20150821
  Serious: Yes (Hospitalization)
  Sender: FDA-Public Use
  Company Number: US-ROCHE-1589717

PATIENT
  Age: 46 Year
  Sex: Female

DRUGS (3)
  1. TOPOTECAN [Suspect]
     Active Substance: TOPOTECAN\TOPOTECAN HYDROCHLORIDE
     Indication: CERVIX CARCINOMA
     Route: 065
  2. PACLITAXEL. [Suspect]
     Active Substance: PACLITAXEL
     Indication: CERVIX CARCINOMA
     Route: 042
     Dates: start: 20100908
  3. BEVACIZUMAB [Suspect]
     Active Substance: BEVACIZUMAB
     Indication: CERVIX CARCINOMA
     Route: 065

REACTIONS (12)
  - Vaginal discharge [Recovered/Resolved]
  - Cough [Unknown]
  - Insomnia [Recovered/Resolved]
  - Nausea [Unknown]
  - Peripheral motor neuropathy [Recovered/Resolved]
  - Peripheral motor neuropathy [Unknown]
  - Depression [Unknown]
  - Peripheral sensory neuropathy [Unknown]
  - Anal fistula [Unknown]
  - Anal fistula [Recovered/Resolved]
  - Aphasia [Recovered/Resolved]
  - Urinary tract infection [Unknown]

NARRATIVE: CASE EVENT DATE: 20101014
